FAERS Safety Report 9204861 (Version 1)
Quarter: 2013Q1

REPORT INFORMATION
  Report Type: Spontaneous
  Country: US (occurrence: None)
  Receive Date: 20120709
  Receipt Date: 20120709
  Transmission Date: 20140127
  Serious: Yes (Other)
  Sender: FDA-Public Use
  Company Number: PHEH2011US04198

PATIENT
  Sex: Female

DRUGS (1)
  1. GLEEVEC (IMATINIB) [Suspect]

REACTIONS (3)
  - Thrombocytopenia [None]
  - Anaemia [None]
  - Leukopenia [None]
